FAERS Safety Report 6619415-6 (Version None)
Quarter: 2010Q1

REPORT INFORMATION
  Report Type: 
  Country: None (occurrence: None)
  Receive Date: 20100309
  Receipt Date: 20100302
  Transmission Date: 20100710
  Serious: Yes (Hospitalization)
  Sender: FDA-Public Use
  Company Number: US-RB-003840-10

PATIENT
  Age: 45 Year
  Sex: Female

DRUGS (3)
  1. SUBOXONE [Suspect]
     Indication: DRUG DEPENDENCE
     Route: 060
     Dates: start: 20100127, end: 20100201
  2. SUBOXONE [Suspect]
     Route: 060
     Dates: start: 20100201, end: 20100218
  3. SUBOXONE [Suspect]
     Route: 060
     Dates: start: 20100219

REACTIONS (2)
  - CYST [None]
  - DRUG WITHDRAWAL SYNDROME [None]
